FAERS Safety Report 6290905-1 (Version None)
Quarter: 2009Q3

REPORT INFORMATION
  Report Type: 
  Country: None (occurrence: None)
  Receive Date: 20090730
  Receipt Date: 20090717
  Transmission Date: 20100115
  Serious: Yes (Hospitalization)
  Sender: FDA-Public Use
  Company Number: PHHY2009IT18527

PATIENT
  Sex: Male
  Weight: 106 kg

DRUGS (3)
  1. RAD 666 RAD+TAB [Suspect]
     Indication: RENAL TRANSPLANT
     Dosage: 1.25 MG/DAY
     Route: 048
     Dates: start: 20051216
  2. RAD 666 RAD+TAB [Suspect]
     Dosage: 1 MG/DAY
     Route: 048
     Dates: start: 20090603
  3. AZATHIOPRINE [Concomitant]
     Indication: RENAL TRANSPLANT
     Dosage: 25 MG/DAY
     Dates: start: 20070123

REACTIONS (5)
  - CHEST PAIN [None]
  - ERYTHEMA INFECTIOSUM [None]
  - HYPERURICAEMIA [None]
  - PANCYTOPENIA [None]
  - PYREXIA [None]
